FAERS Safety Report 7336667-8 (Version None)
Quarter: 2011Q1

REPORT INFORMATION
  Report Type: 
  Country: None (occurrence: None)
  Receive Date: 20110308
  Receipt Date: 20110225
  Transmission Date: 20110831
  Serious: Yes (Hospitalization, Other)
  Sender: FDA-Public Use
  Company Number: AR-AMGEN-ARGSP2011010071

PATIENT
  Age: 65 Year
  Sex: Female
  Weight: 98 kg

DRUGS (4)
  1. ENBREL [Suspect]
     Indication: RHEUMATOID ARTHRITIS
     Dosage: 25 MG, 2X/WEEK
     Route: 058
     Dates: end: 20110201
  2. SULFASALAZINE [Concomitant]
     Dosage: UNK
     Route: 065
  3. METFORMIN [Concomitant]
     Dosage: UNK
  4. CORTICOSTEROIDS [Concomitant]
     Dosage: UNK

REACTIONS (3)
  - LOCALISED INFECTION [None]
  - FISTULA [None]
  - SINUSITIS [None]
